FAERS Safety Report 13573672 (Version 2)
Quarter: 2017Q2

REPORT INFORMATION
  Report Type: Spontaneous
  Country: PL (occurrence: PL)
  Receive Date: 20170523
  Receipt Date: 20170608
  Transmission Date: 20170830
  Serious: Yes (Disabling, Other)
  Sender: FDA-Public Use
  Company Number: PL-ACTELION-A-CH2017-154092

PATIENT
  Age: 47 Year
  Sex: Female

DRUGS (1)
  1. VELETRI [Suspect]
     Active Substance: EPOPROSTENOL
     Indication: PULMONARY ARTERIAL HYPERTENSION
     Dosage: 105000 NG/ML, CONT INFUS
     Route: 042

REACTIONS (7)
  - Dyspnoea [Recovered/Resolved]
  - Device occlusion [Recovered/Resolved]
  - Therapy cessation [Recovered/Resolved]
  - Chest pain [Recovered/Resolved]
  - Syncope [Recovered/Resolved]
  - Asthenia [Recovered/Resolved]
  - Product deposit [Recovered/Resolved]

NARRATIVE: CASE EVENT DATE: 20170504
